FAERS Safety Report 5734667-2 (Version None)
Quarter: 2008Q2

REPORT INFORMATION
  Report Type: 
  Country: None (occurrence: None)
  Receive Date: 20080512
  Receipt Date: 20080505
  Transmission Date: 20081010
  Serious: Yes (Life-Threatening, Hospitalization, Other)
  Sender: FDA-Public Use
  Company Number: PHHY2008BR07186

PATIENT
  Age: 79 Year
  Sex: Female
  Weight: 82 kg

DRUGS (8)
  1. EXELON [Suspect]
     Indication: DEMENTIA ALZHEIMER'S TYPE
     Dosage: 1.5 MG DAILY
     Route: 048
     Dates: start: 20040101
  2. EXELON [Suspect]
     Dosage: 3 MG DAILY
     Route: 048
  3. EXELON [Suspect]
     Dosage: 4.5 MG DAILY
     Route: 048
  4. EXELON [Suspect]
     Dosage: 6 MG DAILY
     Route: 048
  5. EXELON [Suspect]
     Dosage: 12 MG DAILY
     Route: 048
  6. EXELON [Suspect]
     Dosage: 6 MG DAILY
     Route: 048
     Dates: start: 20080301
  7. PURAN T4 [Concomitant]
     Indication: THYROID DISORDER
     Dosage: 50 MG, 1 TAB IN MORNING
     Route: 048
  8. SIMVASTATIN [Concomitant]
     Indication: BLOOD CHOLESTEROL INCREASED
     Dosage: 1 TAB AT NIGHT
     Route: 048

REACTIONS (14)
  - ABDOMINAL PAIN [None]
  - BLOOD PRESSURE INCREASED [None]
  - CARDIAC ARREST [None]
  - CARDIOVERSION [None]
  - DIARRHOEA [None]
  - FATIGUE [None]
  - FEELING ABNORMAL [None]
  - HAEMATEMESIS [None]
  - INFARCTION [None]
  - LOSS OF CONSCIOUSNESS [None]
  - MEMORY IMPAIRMENT [None]
  - SHOCK [None]
  - STENT PLACEMENT [None]
  - SYNCOPE [None]
